FAERS Safety Report 10147016 (Version 1)
Quarter: 2014Q2

REPORT INFORMATION
  Report Type: Spontaneous
  Country: AU (occurrence: AU)
  Receive Date: 20140501
  Receipt Date: 20140501
  Transmission Date: 20141212
  Serious: Yes (Other)
  Sender: FDA-Public Use
  Company Number: AU-GLAXOSMITHKLINE-B0989914A

PATIENT
  Age: 69 Year
  Sex: Female

DRUGS (4)
  1. VOTRIENT [Suspect]
     Indication: METASTATIC RENAL CELL CARCINOMA
     Dates: start: 2013
  2. PERINDOPRIL [Concomitant]
  3. AMLODIPINE [Concomitant]
  4. TAMOXIFEN [Concomitant]
     Indication: BREAST CANCER

REACTIONS (8)
  - Pericardial effusion [Unknown]
  - Hypertension [Recovered/Resolved]
  - Malaise [Recovered/Resolved]
  - Fatigue [Recovered/Resolved]
  - Pain [Recovered/Resolved]
  - Effusion [Unknown]
  - Metastases to lung [Unknown]
  - Headache [Unknown]
